FAERS Safety Report 23903169 (Version 1)
Quarter: 2024Q2

REPORT INFORMATION
  Report Type: Spontaneous
  Country: US (occurrence: US)
  Receive Date: 20240527
  Receipt Date: 20240527
  Transmission Date: 20240716
  Serious: No
  Sender: FDA-Public Use
  Company Number: US-GLENMARK PHARMACEUTICALS-2024GMK088309

PATIENT

DRUGS (1)
  1. METRONIDAZOLE [Suspect]
     Active Substance: METRONIDAZOLE
     Indication: Bacterial infection
     Dosage: 5 GRAM, OD (5 GRAMS APPLIED VAGINALLY ONCE A NIGHT FOR 5 NIGHTS)
     Route: 067
     Dates: start: 202310

REACTIONS (3)
  - Wrong technique in product usage process [Unknown]
  - Device use confusion [Unknown]
  - Therapeutic product effect incomplete [Unknown]

NARRATIVE: CASE EVENT DATE: 20231001
